FAERS Safety Report 4451337-1 (Version None)
Quarter: 2004Q3

REPORT INFORMATION
  Report Type: 
  Country: None (occurrence: None)
  Receive Date: 20040916
  Receipt Date: 20040902
  Transmission Date: 20050211
  Serious: Yes (Other)
  Sender: FDA-Public Use
  Company Number: CH-GLAXOSMITHKLINE-B0344971A

PATIENT
  Age: 60 Year
  Sex: Male
  Weight: 78 kg

DRUGS (4)
  1. FOSAMPRENAVIR [Suspect]
     Indication: HIV INFECTION
     Dosage: 2800MG PER DAY
     Dates: start: 20040212
  2. LOPINAVIR + RITONAVIR [Concomitant]
     Route: 048
     Dates: start: 20031201
  3. TENOFOVIR DISOPROXIL FUMARATE [Concomitant]
     Route: 048
     Dates: start: 20031201
  4. LAMIVUDINE [Concomitant]
     Dosage: 150MG TWICE PER DAY
     Route: 048
     Dates: start: 20030301

REACTIONS (6)
  - DEPRESSED MOOD [None]
  - DEPRESSION [None]
  - DISTURBANCE IN ATTENTION [None]
  - FATIGUE [None]
  - MEMORY IMPAIRMENT [None]
  - SLEEP DISORDER [None]
